FAERS Safety Report 15556899 (Version 6)
Quarter: 2019Q1

REPORT INFORMATION
  Report Type: Report from Study
  Country: CO (occurrence: CO)
  Receive Date: 20181026
  Receipt Date: 20190117
  Transmission Date: 20190417
  Serious: Yes (Death, Hospitalization)
  Sender: FDA-Public Use
  Company Number: PHHY2018CO135039

PATIENT
  Age: 54 Year
  Sex: Male
  Weight: 80 kg

DRUGS (6)
  1. LOPRESOR [Suspect]
     Active Substance: METOPROLOL
     Indication: PRODUCT USED FOR UNKNOWN INDICATION
     Route: 065
  2. ATORVASTATIN [Suspect]
     Active Substance: ATORVASTATIN
     Indication: PRODUCT USED FOR UNKNOWN INDICATION
     Route: 065
  3. ACETYLSALICYLIC ACID [Concomitant]
     Active Substance: ASPIRIN
     Indication: PRODUCT USED FOR UNKNOWN INDICATION
     Route: 065
  4. FURUSEMIDE [Concomitant]
     Active Substance: FUROSEMIDE
     Indication: PRODUCT USED FOR UNKNOWN INDICATION
     Route: 065
  5. INSULIN [Concomitant]
     Active Substance: INSULIN NOS
     Indication: PRODUCT USED FOR UNKNOWN INDICATION
     Route: 065
  6. ENTRESTO [Suspect]
     Active Substance: SACUBITRIL\VALSARTAN
     Indication: CARDIAC FAILURE
     Dosage: 50 MG, Q12H
     Route: 048
     Dates: start: 20180625

REACTIONS (16)
  - Renal disorder [Fatal]
  - Dyspnoea [Unknown]
  - Peripheral swelling [Unknown]
  - Weight increased [Unknown]
  - Insomnia [Unknown]
  - Chest pain [Unknown]
  - Fatigue [Unknown]
  - Loss of consciousness [Unknown]
  - Joint swelling [Unknown]
  - Abdominal distension [Unknown]
  - Decreased appetite [Unknown]
  - Renal failure [Unknown]
  - Somnolence [Unknown]
  - Urinary retention [Unknown]
  - Tremor [Unknown]
  - Orthopnoea [Unknown]

NARRATIVE: CASE EVENT DATE: 20181205
